FAERS Safety Report 20933925 (Version 2)
Quarter: 2022Q3

REPORT INFORMATION
  Report Type: Spontaneous
  Country: US (occurrence: US)
  Receive Date: 20220608
  Receipt Date: 20220805
  Transmission Date: 20221027
  Serious: Yes (Hospitalization, Other)
  Sender: FDA-Public Use
  Company Number: US-ALXN-A202206715

PATIENT
  Age: 38 Year
  Sex: Female

DRUGS (1)
  1. SOLIRIS [Suspect]
     Active Substance: ECULIZUMAB
     Indication: Myasthenia gravis
     Dosage: UNK
     Route: 065
     Dates: start: 20220511

REACTIONS (6)
  - Device related thrombosis [Unknown]
  - Pulmonary thrombosis [Unknown]
  - Jugular vein thrombosis [Unknown]
  - Illness [Unknown]
  - Incorrect product administration duration [Unknown]
  - Headache [Recovered/Resolved]

NARRATIVE: CASE EVENT DATE: 20220501
